FAERS Safety Report 25408010 (Version 1)
Quarter: 2025Q2

REPORT INFORMATION
  Report Type: Spontaneous
  Country: CA (occurrence: CA)
  Receive Date: 20250606
  Receipt Date: 20250606
  Transmission Date: 20250717
  Serious: Yes (Death)
  Sender: MYLAN
  Company Number: CA-MYLANLABS-2025M1048071

PATIENT
  Age: 52 Year
  Sex: Male

DRUGS (44)
  1. AMLODIPINE [Suspect]
     Active Substance: AMLODIPINE BESYLATE
     Indication: Product used for unknown indication
  2. AMLODIPINE [Suspect]
     Active Substance: AMLODIPINE BESYLATE
     Route: 065
  3. AMLODIPINE [Suspect]
     Active Substance: AMLODIPINE BESYLATE
     Route: 065
  4. AMLODIPINE [Suspect]
     Active Substance: AMLODIPINE BESYLATE
  5. GABAPENTIN [Suspect]
     Active Substance: GABAPENTIN
     Indication: Product used for unknown indication
  6. GABAPENTIN [Suspect]
     Active Substance: GABAPENTIN
     Route: 065
  7. GABAPENTIN [Suspect]
     Active Substance: GABAPENTIN
     Route: 065
  8. GABAPENTIN [Suspect]
     Active Substance: GABAPENTIN
  9. CAFFEINE [Suspect]
     Active Substance: CAFFEINE
     Indication: Product used for unknown indication
  10. CAFFEINE [Suspect]
     Active Substance: CAFFEINE
     Route: 065
  11. CAFFEINE [Suspect]
     Active Substance: CAFFEINE
     Route: 065
  12. CAFFEINE [Suspect]
     Active Substance: CAFFEINE
  13. CITALOPRAM [Suspect]
     Active Substance: CITALOPRAM
     Indication: Product used for unknown indication
  14. CITALOPRAM [Suspect]
     Active Substance: CITALOPRAM
     Route: 065
  15. CITALOPRAM [Suspect]
     Active Substance: CITALOPRAM
     Route: 065
  16. CITALOPRAM [Suspect]
     Active Substance: CITALOPRAM
  17. CYCLOBENZAPRINE [Suspect]
     Active Substance: CYCLOBENZAPRINE
     Indication: Product used for unknown indication
  18. CYCLOBENZAPRINE [Suspect]
     Active Substance: CYCLOBENZAPRINE
     Route: 065
  19. CYCLOBENZAPRINE [Suspect]
     Active Substance: CYCLOBENZAPRINE
     Route: 065
  20. CYCLOBENZAPRINE [Suspect]
     Active Substance: CYCLOBENZAPRINE
  21. ALCOHOL [Suspect]
     Active Substance: ALCOHOL
     Indication: Product used for unknown indication
  22. ALCOHOL [Suspect]
     Active Substance: ALCOHOL
     Route: 065
  23. ALCOHOL [Suspect]
     Active Substance: ALCOHOL
     Route: 065
  24. ALCOHOL [Suspect]
     Active Substance: ALCOHOL
  25. FENTANYL [Suspect]
     Active Substance: FENTANYL
     Indication: Product used for unknown indication
  26. FENTANYL [Suspect]
     Active Substance: FENTANYL
     Route: 065
  27. FENTANYL [Suspect]
     Active Substance: FENTANYL
     Route: 065
  28. FENTANYL [Suspect]
     Active Substance: FENTANYL
  29. NALOXONE [Suspect]
     Active Substance: NALOXONE
     Indication: Product used for unknown indication
  30. NALOXONE [Suspect]
     Active Substance: NALOXONE
     Route: 065
  31. NALOXONE [Suspect]
     Active Substance: NALOXONE
     Route: 065
  32. NALOXONE [Suspect]
     Active Substance: NALOXONE
  33. NICOTINE [Suspect]
     Active Substance: NICOTINE
     Indication: Product used for unknown indication
  34. NICOTINE [Suspect]
     Active Substance: NICOTINE
     Route: 065
  35. NICOTINE [Suspect]
     Active Substance: NICOTINE
     Route: 065
  36. NICOTINE [Suspect]
     Active Substance: NICOTINE
  37. NORTRIPTYLINE [Suspect]
     Active Substance: NORTRIPTYLINE
     Indication: Product used for unknown indication
  38. NORTRIPTYLINE [Suspect]
     Active Substance: NORTRIPTYLINE
     Route: 065
  39. NORTRIPTYLINE [Suspect]
     Active Substance: NORTRIPTYLINE
     Route: 065
  40. NORTRIPTYLINE [Suspect]
     Active Substance: NORTRIPTYLINE
  41. TRAZODONE [Suspect]
     Active Substance: TRAZODONE HYDROCHLORIDE
     Indication: Product used for unknown indication
  42. TRAZODONE [Suspect]
     Active Substance: TRAZODONE HYDROCHLORIDE
     Route: 065
  43. TRAZODONE [Suspect]
     Active Substance: TRAZODONE HYDROCHLORIDE
     Route: 065
  44. TRAZODONE [Suspect]
     Active Substance: TRAZODONE HYDROCHLORIDE

REACTIONS (2)
  - Overdose [Fatal]
  - Toxicity to various agents [Fatal]
